FAERS Safety Report 8176936 (Version 2)
Quarter: 2012Q4

REPORT INFORMATION
  Report Type: Report from Study
  Country: FR (occurrence: FR)
  Receive Date: 20111012
  Receipt Date: 20120921
  Transmission Date: 20130627
  Serious: Yes (Hospitalization)
  Sender: FDA-Public Use
  Company Number: PHHO2011FR10829

PATIENT
  Age: 63 Year
  Sex: Male

DRUGS (3)
  1. RAD 666 / RAD 001A [Suspect]
     Indication: RENAL TRANSPLANT
     Dosage: 2 mg, UNK
     Route: 048
     Dates: start: 20110407, end: 20110628
  2. CELLCEPT [Concomitant]
     Indication: RENAL TRANSPLANT
     Dosage: 1 g, UNK
     Route: 048
     Dates: start: 20110402, end: 2011
  3. CORTANCYL [Concomitant]
     Indication: RENAL TRANSPLANT
     Dosage: 10 mg, UNK
     Route: 048
     Dates: start: 20110405

REACTIONS (1)
  - Renal failure acute [Recovered/Resolved]
